FAERS Safety Report 7149357-1 (Version None)
Quarter: 2010Q4

REPORT INFORMATION
  Report Type: 
  Country: None (occurrence: None)
  Receive Date: 20101209
  Receipt Date: 20101011
  Transmission Date: 20110411
  Serious: Yes (Other)
  Sender: FDA-Public Use
  Company Number: CHPA2010US12377

PATIENT
  Sex: Female
  Weight: 63.492 kg

DRUGS (3)
  1. PREVACID 24 HR [Suspect]
     Indication: DYSPEPSIA
     Dosage: 15 MG, ONCE/SINGLE
     Route: 048
     Dates: start: 20100729, end: 20100729
  2. LEVOTHYROXINE SODIUM [Concomitant]
     Indication: HYPOTHYROIDISM
     Dosage: 0.5 DF, QD
     Route: 048
     Dates: start: 20100101
  3. NSAID'S [Concomitant]

REACTIONS (35)
  - ABDOMINAL PAIN [None]
  - ABDOMINAL TENDERNESS [None]
  - ALBUMIN GLOBULIN RATIO ABNORMAL [None]
  - ANAEMIA [None]
  - ASTHENIA [None]
  - BACK PAIN [None]
  - BLOOD ALBUMIN INCREASED [None]
  - BLOOD CHLORIDE INCREASED [None]
  - BLOOD GLUCOSE INCREASED [None]
  - CARBON DIOXIDE DECREASED [None]
  - CHILLS [None]
  - DEHYDRATION [None]
  - DIARRHOEA HAEMORRHAGIC [None]
  - DISTURBANCE IN ATTENTION [None]
  - DYSPNOEA [None]
  - GASTROENTERITIS [None]
  - GLOMERULAR FILTRATION RATE DECREASED [None]
  - HAEMATEMESIS [None]
  - HAEMATOCHEZIA [None]
  - HAEMOPTYSIS [None]
  - HEADACHE [None]
  - INCORRECT DRUG ADMINISTRATION DURATION [None]
  - LYMPHOCYTE MORPHOLOGY ABNORMAL [None]
  - MEAN CELL HAEMOGLOBIN DECREASED [None]
  - MEAN CELL VOLUME ABNORMAL [None]
  - MONOCYTE COUNT INCREASED [None]
  - NAUSEA [None]
  - NEUTROPHIL COUNT INCREASED [None]
  - OFF LABEL USE [None]
  - PYREXIA [None]
  - RED BLOOD CELL COUNT INCREASED [None]
  - RED BLOOD CELL HYPOCHROMIC MORPHOLOGY PRESENT [None]
  - RED CELL DISTRIBUTION WIDTH INCREASED [None]
  - THALASSAEMIA BETA [None]
  - WHITE BLOOD CELL COUNT INCREASED [None]
